FAERS Safety Report 4720669-1 (Version None)
Quarter: 2005Q3

REPORT INFORMATION
  Report Type: 
  Country: None (occurrence: None)
  Receive Date: 20050721
  Receipt Date: 20050718
  Transmission Date: 20060218
  Serious: Yes (Hospitalization)
  Sender: FDA-Public Use
  Company Number: 200515810US

PATIENT
  Age: 46 Year
  Sex: Female

DRUGS (2)
  1. LANTUS [Suspect]
     Dosage: DOSE: UNK
     Dates: start: 20020101, end: 20040101
  2. INSULIN NOS [Concomitant]
     Dosage: DOSE: UNK

REACTIONS (5)
  - ANKLE FRACTURE [None]
  - CONTUSION [None]
  - DIZZINESS [None]
  - FALL [None]
  - FEELING ABNORMAL [None]
